FAERS Safety Report 7318957-8 (Version None)
Quarter: 2011Q1

REPORT INFORMATION
  Report Type: 
  Country: None (occurrence: None)
  Receive Date: 20110228
  Receipt Date: 20110215
  Transmission Date: 20110831
  Serious: Yes (Other)
  Sender: FDA-Public Use
  Company Number: ZA-ELI_LILLY_AND_COMPANY-ZA201102004373

PATIENT
  Age: 20 Year
  Sex: Male

DRUGS (2)
  1. ATIVAN [Concomitant]
     Dosage: 1 MG, AS NEEDED
  2. ZYPREXA [Suspect]
     Indication: SCHIZOPHRENIA
     Dosage: 10 MG, UNK
     Route: 030
     Dates: start: 20110214

REACTIONS (1)
  - DEPRESSED LEVEL OF CONSCIOUSNESS [None]
